FAERS Safety Report 8682192 (Version 2)
Quarter: 2012Q4

REPORT INFORMATION
  Report Type: Spontaneous
  Country: US (occurrence: None)
  Receive Date: 20120709
  Receipt Date: 20120910
  Transmission Date: 20130627
  Serious: Yes (Other)
  Sender: FDA-Public Use
  Company Number: 2012P1043850

PATIENT
  Age: 34 Year
  Sex: Female

DRUGS (1)
  1. LAMOTRIGINE [Suspect]
     Indication: BIPOLAR DISORDER
     Route: 048
     Dates: start: 201205, end: 20120619

REACTIONS (10)
  - Ear pain [None]
  - Lymphadenopathy [None]
  - Tongue ulceration [None]
  - VIIth nerve paralysis [None]
  - Hypoaesthesia oral [None]
  - Viral infection [None]
  - Speech disorder [None]
  - Economic problem [None]
  - Product substitution issue [None]
  - Product quality issue [None]
